FAERS Safety Report 25777319 (Version 1)
Quarter: 2025Q3

REPORT INFORMATION
  Report Type: Spontaneous
  Country: US (occurrence: US)
  Receive Date: 20250909
  Receipt Date: 20250909
  Transmission Date: 20251020
  Serious: No
  Sender: Haleon PLC
  Company Number: US-HALEON-2261069

PATIENT

DRUGS (1)
  1. TUMS CHEWY BITES MIXED FRUIT [Suspect]
     Active Substance: CALCIUM CARBONATE
     Indication: Mineral supplementation

REACTIONS (2)
  - Blood potassium increased [Unknown]
  - Off label use [Unknown]
